FAERS Safety Report 10191098 (Version 1)
Quarter: 2014Q2

REPORT INFORMATION
  Report Type: Spontaneous
  Country: US (occurrence: None)
  Receive Date: 20140521
  Receipt Date: 20140521
  Transmission Date: 20141212
  Serious: Yes (Hospitalization)
  Sender: FDA-Public Use
  Company Number: None

PATIENT
  Age: 66 Year
  Sex: Male
  Weight: 108 kg

DRUGS (3)
  1. TAXOL [Suspect]
     Dosage: 400.8 MG Q 3 WEEKS INTRAVENEOUS
     Route: 042
  2. CETUXIMAB [Suspect]
     Route: 042
  3. CISPLATIN [Concomitant]

REACTIONS (1)
  - Diverticulitis [None]
